FAERS Safety Report 8847461 (Version 2)
Quarter: 2013Q1

REPORT INFORMATION
  Report Type: Spontaneous
  Country: BR (occurrence: BR)
  Receive Date: 20121018
  Receipt Date: 20130130
  Transmission Date: 20140127
  Serious: Yes (Death)
  Sender: FDA-Public Use
  Company Number: BR-ABBOTT-12P-020-0996497-00

PATIENT
  Age: 63 Year
  Sex: Male

DRUGS (2)
  1. HUMIRA [Suspect]
     Indication: ANKYLOSING SPONDYLITIS
     Route: 058
     Dates: start: 20120415
  2. SULFASALAZINE [Concomitant]
     Indication: ANKYLOSING SPONDYLITIS

REACTIONS (2)
  - Acute myocardial infarction [Fatal]
  - Arteriosclerosis coronary artery [Fatal]
